FAERS Safety Report 17742555 (Version 1)
Quarter: 2020Q2

REPORT INFORMATION
  Report Type: Spontaneous
  Country: US (occurrence: US)
  Receive Date: 20200505
  Receipt Date: 20200505
  Transmission Date: 20200714
  Serious: No
  Sender: FDA-Public Use
  Company Number: US-BION-008638

PATIENT

DRUGS (1)
  1. DOFETILIDE PRODUCT UNKNOWN [Suspect]
     Active Substance: DOFETILIDE
     Indication: PRODUCT USED FOR UNKNOWN INDICATION

REACTIONS (1)
  - Incorrect dose administered [Not Recovered/Not Resolved]
